FAERS Safety Report 10287458 (Version 1)
Quarter: 2014Q3

REPORT INFORMATION
  Report Type: Spontaneous
  Country: AU (occurrence: AU)
  Receive Date: 20140709
  Receipt Date: 20140709
  Transmission Date: 20150326
  Serious: Yes (Other)
  Sender: FDA-Public Use
  Company Number: AU-ACTAVIS PTY LTD-2014-14588

PATIENT
  Age: 72 Year
  Sex: Female

DRUGS (1)
  1. ALENDRONATE SODIUM (UNKNOWN) [Suspect]
     Active Substance: ALENDRONATE SODIUM
     Indication: OSTEOPOROSIS
     Dosage: 70 MG, 1/WEEK
     Route: 065
     Dates: start: 200611, end: 201106

REACTIONS (1)
  - Osteonecrosis [Unknown]
